FAERS Safety Report 5890269-9 (Version None)
Quarter: 2008Q3

REPORT INFORMATION
  Report Type: 
  Country: None (occurrence: None)
  Receive Date: 20080919
  Receipt Date: 20080915
  Transmission Date: 20090109
  Serious: Yes (Other)
  Sender: FDA-Public Use
  Company Number: US-PFIZER INC-2008077895

PATIENT
  Sex: Female
  Weight: 106.81 kg

DRUGS (6)
  1. LIPITOR [Suspect]
     Indication: BLOOD CHOLESTEROL INCREASED
     Dates: start: 20070101
  2. PLAVIX [Concomitant]
  3. VALSARTAN [Concomitant]
  4. MONTELUKAST SODIUM [Concomitant]
  5. DUONEB [Concomitant]
  6. PRIMACOR [Concomitant]

REACTIONS (4)
  - DRUG DOSE OMISSION [None]
  - HYPOAESTHESIA [None]
  - JOINT DISLOCATION [None]
  - MUSCULAR WEAKNESS [None]
